FAERS Safety Report 10145631 (Version 1)
Quarter: 2014Q2

REPORT INFORMATION
  Report Type: Spontaneous
  Country: US (occurrence: US)
  Receive Date: 20140501
  Receipt Date: 20140501
  Transmission Date: 20141212
  Serious: No
  Sender: FDA-Public Use
  Company Number: US-009507513-1404USA010963

PATIENT
  Sex: Female

DRUGS (7)
  1. MEVACOR TABLET [Suspect]
     Indication: HYPERCHOLESTEROLAEMIA
     Dosage: UNK
     Route: 048
     Dates: start: 2004, end: 200509
  2. ZOCOR [Suspect]
     Dosage: UNK
     Route: 048
     Dates: end: 200601
  3. LIPITOR [Suspect]
     Dosage: UNK
     Dates: start: 200601
  4. COMBIVENT RESPIMAT [Suspect]
     Indication: ASTHMA
  5. COMBIVENT RESPIMAT [Suspect]
     Indication: CHRONIC OBSTRUCTIVE PULMONARY DISEASE
  6. SYMBICORT [Suspect]
     Indication: ASTHMA
  7. SYMBICORT [Suspect]
     Indication: CHRONIC OBSTRUCTIVE PULMONARY DISEASE

REACTIONS (1)
  - Myalgia [Unknown]
